FAERS Safety Report 4759217-9 (Version None)
Quarter: 2005Q3

REPORT INFORMATION
  Report Type: 
  Country: None (occurrence: None)
  Receive Date: 20050831
  Receipt Date: 20050816
  Transmission Date: 20060218
  Serious: Yes (Hospitalization)
  Sender: FDA-Public Use
  Company Number: DSA_26907_2005

PATIENT
  Age: 56 Year
  Sex: Female

DRUGS (7)
  1. LORAZEPAM [Suspect]
     Indication: DEPRESSION
     Dosage: VAR Q DAY PO
     Route: 048
     Dates: start: 20001222
  2. CLOZAPINE [Suspect]
     Dosage: 125 MG Q DAY PO
     Route: 048
     Dates: start: 20000101, end: 20010110
  3. CLOZAPINE [Suspect]
     Dosage: 75 MG Q DAY PO
     Route: 048
     Dates: start: 20010111, end: 20010111
  4. ZOLOFT [Suspect]
     Dosage: 50 MG Q DAY PO
     Route: 048
     Dates: start: 20000101, end: 20001228
  5. ZOLOFT [Suspect]
     Dosage: 100 MG Q DAY PO
     Route: 048
     Dates: start: 20001229
  6. NOROXIN [Concomitant]
  7. TRANXILIUM [Concomitant]

REACTIONS (13)
  - ABNORMAL BEHAVIOUR [None]
  - AGITATION [None]
  - BRAIN DAMAGE [None]
  - CEREBRAL ATROPHY [None]
  - CONFUSIONAL STATE [None]
  - DELUSION [None]
  - DEPERSONALISATION [None]
  - DEPRESSION [None]
  - DISORIENTATION [None]
  - FEAR [None]
  - SLEEP DISORDER [None]
  - SOMNOLENCE [None]
  - THINKING ABNORMAL [None]
